FAERS Safety Report 4434807-1 (Version None)
Quarter: 2004Q3

REPORT INFORMATION
  Report Type: 
  Country: None (occurrence: None)
  Receive Date: 20040827
  Receipt Date: 20040820
  Transmission Date: 20050211
  Serious: Yes (Life-Threatening, Hospitalization, Other)
  Sender: FDA-Public Use
  Company Number: PHBS2004JP11012

PATIENT
  Age: 54 Year
  Sex: Female
  Weight: 51 kg

DRUGS (1)
  1. CYCLOSPORINE [Suspect]
     Indication: STEM CELL TRANSPLANT
     Route: 065

REACTIONS (6)
  - BLOOD PRESSURE INCREASED [None]
  - CEREBRAL HAEMORRHAGE [None]
  - GRAFT VERSUS HOST DISEASE [None]
  - LOSS OF CONSCIOUSNESS [None]
  - PLATELET COUNT DECREASED [None]
  - VOMITING [None]
